FAERS Safety Report 5120741-0 (Version None)
Quarter: 2006Q4

REPORT INFORMATION
  Report Type: 
  Country: None (occurrence: None)
  Receive Date: 20061003
  Receipt Date: 20061003
  Transmission Date: 20070319
  Serious: No
  Sender: FDA-Public Use
  Company Number: None

PATIENT
  Age: 63 Year
  Sex: Female
  Weight: 70.3075 kg

DRUGS (1)
  1. SILVER SULFADIAZINE [Suspect]
     Indication: THERMAL BURN
     Dosage: AS NEEDED 2 X DAY
     Dates: start: 20060622, end: 20060701

REACTIONS (3)
  - DRUG INEFFECTIVE [None]
  - IMPAIRED HEALING [None]
  - SKIN DISCOLOURATION [None]
